FAERS Safety Report 20747953 (Version 2)
Quarter: 2022Q2

REPORT INFORMATION
  Report Type: Spontaneous
  Country: US (occurrence: US)
  Receive Date: 20220425
  Receipt Date: 20220620
  Transmission Date: 20220721
  Serious: No
  Sender: FDA-Public Use
  Company Number: US-BRISTOL-MYERS SQUIBB COMPANY-2022-024533

PATIENT
  Age: 73 Year
  Sex: Male

DRUGS (2)
  1. REVLIMID [Suspect]
     Active Substance: LENALIDOMIDE
     Indication: Product used for unknown indication
     Dosage: 21 DAYS ON 7 DAYS OFF
     Route: 048
     Dates: start: 202203
  2. REVLIMID [Suspect]
     Active Substance: LENALIDOMIDE
     Indication: Chronic myeloid leukaemia

REACTIONS (2)
  - Intentional product use issue [Unknown]
  - Diarrhoea [Unknown]

NARRATIVE: CASE EVENT DATE: 20220325
